FAERS Safety Report 21693311 (Version 1)
Quarter: 2022Q4

REPORT INFORMATION
  Report Type: Spontaneous
  Country: NO (occurrence: NO)
  Receive Date: 20221207
  Receipt Date: 20221207
  Transmission Date: 20230113
  Serious: Yes (Hospitalization)
  Sender: FDA-Public Use
  Company Number: NO-MYLANLABS-2022M1135516

PATIENT
  Age: 4 Decade
  Sex: Female

DRUGS (9)
  1. INSULIN GLARGINE [Suspect]
     Active Substance: INSULIN GLARGINE
     Indication: Hyperglycaemia
     Dosage: 30 INTERNATIONAL UNIT, QH
     Route: 065
  2. ALBENDAZOLE [Concomitant]
     Active Substance: ALBENDAZOLE
     Indication: Echinococciasis
     Dosage: 400 MILLIGRAM, RECEIVED IN THE MORNING AND EVENING
     Route: 065
  3. SODIUM CHLORIDE [Concomitant]
     Active Substance: SODIUM CHLORIDE
     Indication: Peritoneal lavage
     Dosage: 2 LITER, 2L
     Route: 065
  4. DEXTROSE [Concomitant]
     Active Substance: DEXTROSE
     Indication: Hypernatraemia
     Dosage: 200 MILLILITER, BOLUS
     Route: 042
  5. DEXTROSE [Concomitant]
     Active Substance: DEXTROSE
     Dosage: UNK, 8.6 ML/KG/HOUR, INFUSION
     Route: 042
  6. FUROSEMIDE [Concomitant]
     Active Substance: FUROSEMIDE
     Indication: Hypernatraemia
     Dosage: UNK, 30 MG/H
     Route: 042
  7. FUROSEMIDE [Concomitant]
     Active Substance: FUROSEMIDE
     Dosage: UNK, 10 MG/HOUR
     Route: 042
  8. SALINE [Concomitant]
     Active Substance: SODIUM CHLORIDE
     Indication: Peritoneal lavage
     Dosage: UNK
     Route: 065
  9. PRAZIQUANTEL [Concomitant]
     Active Substance: PRAZIQUANTEL
     Indication: Echinococciasis
     Dosage: 30 MILLIGRAM/KILOGRAM, RECEIVED IN MORNING AND EVENING
     Route: 065

REACTIONS (5)
  - Hyperchloraemia [Recovered/Resolved]
  - Hypophosphataemia [Recovered/Resolved]
  - Hypomagnesaemia [Recovered/Resolved]
  - Hypokalaemia [Recovered/Resolved]
  - Drug ineffective [Unknown]
